FAERS Safety Report 8476628-9 (Version None)
Quarter: 2012Q2

REPORT INFORMATION
  Report Type: 
  Country: None (occurrence: None)
  Receive Date: 20120628
  Receipt Date: 20120626
  Transmission Date: 20120825
  Serious: Yes (Hospitalization)
  Sender: FDA-Public Use
  Company Number: US-PFIZER INC-2012154004

PATIENT
  Sex: Female
  Weight: 80.272 kg

DRUGS (1)
  1. LIPITOR [Suspect]
     Indication: BLOOD CHOLESTEROL ABNORMAL
     Dosage: 40 MG, DAILY

REACTIONS (3)
  - WHITE BLOOD CELL COUNT DECREASED [None]
  - LYMPHOMA [None]
  - ALOPECIA [None]
